FAERS Safety Report 11100105 (Version 2)
Quarter: 2015Q2

REPORT INFORMATION
  Report Type: Report from Study
  Country: CA (occurrence: CA)
  Receive Date: 20150508
  Receipt Date: 20150617
  Transmission Date: 20150821
  Serious: Yes (Other)
  Sender: FDA-Public Use
  Company Number: CA-AMGEN-CANSL2015043443

PATIENT
  Age: 57 Year
  Sex: Female
  Weight: 71 kg

DRUGS (10)
  1. PROLIA [Suspect]
     Active Substance: DENOSUMAB
     Dosage: 60 MG, Q6MO
     Route: 058
     Dates: start: 20120919
  2. PROLIA [Suspect]
     Active Substance: DENOSUMAB
     Indication: OSTEOPOROSIS POSTMENOPAUSAL
     Dosage: 60 MG, Q6MO
     Route: 058
     Dates: start: 20120312
  3. PROLIA [Suspect]
     Active Substance: DENOSUMAB
     Dosage: 60 UNK, UNK
     Route: 058
     Dates: start: 20130925
  4. PROLIA [Suspect]
     Active Substance: DENOSUMAB
     Dosage: 60 MG, Q6MO
     Route: 058
     Dates: start: 20150325
  5. PROLIA [Suspect]
     Active Substance: DENOSUMAB
     Dosage: 60 UNK, UNK
     Route: 058
     Dates: start: 20130319
  6. CALCIUM [Concomitant]
     Active Substance: CALCIUM
     Dosage: UNK
  7. VITAMIN B12 [Concomitant]
     Active Substance: CYANOCOBALAMIN
     Dosage: UNK
  8. PROLIA [Suspect]
     Active Substance: DENOSUMAB
     Dosage: 60 UNK, UNK
     Route: 058
     Dates: start: 20140325
  9. PROLIA [Suspect]
     Active Substance: DENOSUMAB
     Dosage: 60 UNK, UNK
     Route: 058
     Dates: start: 20140925
  10. VITAMIN D                          /00107901/ [Concomitant]
     Active Substance: ERGOCALCIFEROL
     Dosage: UNK

REACTIONS (5)
  - Peripheral arterial occlusive disease [Unknown]
  - Foot fracture [Recovered/Resolved]
  - Stress fracture [Recovered/Resolved]
  - Pain in extremity [Unknown]
  - Peripheral vascular disorder [Not Recovered/Not Resolved]

NARRATIVE: CASE EVENT DATE: 20131215
